FAERS Safety Report 24393767 (Version 1)
Quarter: 2024Q4

REPORT INFORMATION
  Report Type: Spontaneous
  Country: TH (occurrence: TH)
  Receive Date: 20241003
  Receipt Date: 20241003
  Transmission Date: 20250114
  Serious: Yes (Hospitalization, Other)
  Sender: OTSUKA
  Company Number: TH-OTSUKA-2024_026568

PATIENT
  Age: 89 Year
  Sex: Female

DRUGS (1)
  1. REXULTI [Suspect]
     Active Substance: BREXPIPRAZOLE
     Indication: Dementia
     Dosage: 1 MG
     Route: 048
     Dates: end: 20240924

REACTIONS (7)
  - Rhabdomyolysis [Unknown]
  - Logorrhoea [Unknown]
  - Disorientation [Unknown]
  - Hypophagia [Unknown]
  - Hypersomnia [Unknown]
  - Insomnia [Unknown]
  - Off label use [Unknown]

NARRATIVE: CASE EVENT DATE: 20240923
